FAERS Safety Report 8518568 (Version 3)
Quarter: 2012Q4

REPORT INFORMATION
  Report Type: 
  Country: US (occurrence: US)
  Receive Date: 20120417
  Receipt Date: 20121227
  Transmission Date: 20130627
  Serious: No
  Sender: FDA-Public Use
  Company Number: US-ASTRAZENECA-2011SE21392

PATIENT
  Age: 52 Year
  Sex: Male

DRUGS (3)
  1. NEXIUM [Suspect]
     Route: 048
  2. NEXIUM [Suspect]
     Route: 048
  3. PRILOSEC [Suspect]
     Route: 048

REACTIONS (11)
  - Gastrooesophageal reflux disease [Unknown]
  - Arthritis [Unknown]
  - Nasopharyngitis [Unknown]
  - Fall [Unknown]
  - Limb injury [Unknown]
  - Pain in extremity [Unknown]
  - Gastric disorder [Unknown]
  - Dyspepsia [Unknown]
  - Drug dose omission [Unknown]
  - Intentional drug misuse [Unknown]
  - Off label use [Unknown]
